FAERS Safety Report 10396551 (Version 1)
Quarter: 2014Q1

REPORT INFORMATION
  Report Type: Spontaneous
  Country: US (occurrence: None)
  Receive Date: 20130606
  Receipt Date: 20130606
  Transmission Date: 20141002
  Serious: No
  Sender: FDA-Public Use
  Company Number: 2013BAX012888

PATIENT
  Age: 14 Year
  Sex: Female

DRUGS (1)
  1. GAMMAGARD [Suspect]
     Indication: PRIMARY IMMUNODEFICIENCY SYNDROME
     Route: 058

REACTIONS (4)
  - Abdominal pain [None]
  - Injection site pain [None]
  - Emotional disorder [None]
  - Malaise [None]
